FAERS Safety Report 21095857 (Version 1)
Quarter: 2022Q3

REPORT INFORMATION
  Report Type: Other
  Country: US (occurrence: None)
  Receive Date: 20220718
  Receipt Date: 20220718
  Transmission Date: 20221026
  Serious: Yes (Death)
  Sender: FDA-Public Use
  Company Number: US-ROCHE-3130411

PATIENT
  Sex: Female

DRUGS (2)
  1. OCREVUS [Suspect]
     Active Substance: OCRELIZUMAB
     Indication: Primary progressive multiple sclerosis
     Dosage: ONGOING: NO: DOSE: TWO 300 MG VIAL
     Route: 065
     Dates: start: 20210527, end: 20211129
  2. BACLOFEN [Concomitant]
     Active Substance: BACLOFEN

REACTIONS (2)
  - COVID-19 [Fatal]
  - Seizure [Fatal]
